FAERS Safety Report 8566524 (Version 3)
Quarter: 2012Q4

REPORT INFORMATION
  Report Type: 
  Country: IL (occurrence: IL)
  Receive Date: 20120517
  Receipt Date: 20120830
  Transmission Date: 20130627
  Serious: Yes (Other)
  Sender: FDA-Public Use
  Company Number: IL-SANOFI-AVENTIS-2012SA034049

PATIENT
  Age: 60 Year
  Sex: Female

DRUGS (7)
  1. ARAVA [Suspect]
     Indication: RHEUMATOID ARTHRITIS
     Dosage: loading dose of 100 mg for 3 days
     Route: 065
     Dates: start: 20010315
  2. ARAVA [Suspect]
     Indication: RHEUMATOID ARTHRITIS
     Route: 065
     Dates: end: 20020701
  3. ARAVA [Suspect]
     Indication: RHEUMATOID ARTHRITIS
     Dosage: duration: 1-2 weeks
     Route: 065
     Dates: start: 200209
  4. PREDNISONE [Concomitant]
     Route: 065
  5. PLAQUENIL [Concomitant]
     Route: 065
  6. CALCIUM [Concomitant]
  7. VITAMIN D [Concomitant]

REACTIONS (5)
  - Nephrolithiasis [Recovered/Resolved]
  - Pancreatitis relapsing [Recovered/Resolved]
  - Abdominal pain [Recovered/Resolved]
  - Vomiting [Recovered/Resolved]
  - Amylase increased [Recovered/Resolved]
